FAERS Safety Report 10288015 (Version 2)
Quarter: 2014Q4

REPORT INFORMATION
  Report Type: Spontaneous
  Country: US (occurrence: None)
  Receive Date: 20140707
  Receipt Date: 20141128
  Transmission Date: 20150528
  Serious: Yes (Other)
  Sender: FDA-Public Use
  Company Number: US-RRD-14-00081

PATIENT
  Age: 51 Year
  Sex: Female

DRUGS (4)
  1. PREDDNISONE (PREDDNISONE) (PREDDNISONE) [Concomitant]
  2. MECHLORETHAMINE [Suspect]
     Active Substance: MECHLORETHAMINE
     Indication: HODGKIN^S DISEASE
  3. VINCRISTINE(VTNCRISTINE)(VINCRISTINE) [Concomitant]
  4. PROCARBAZINE (PROCARPAZINE) (PROCARBAZINE) [Concomitant]

REACTIONS (3)
  - Large intestine polyp [None]
  - Gastric polyps [None]
  - Adenoma benign [None]
